FAERS Safety Report 10422450 (Version 1)
Quarter: 2014Q3

REPORT INFORMATION
  Report Type: Spontaneous
  Country: VE (occurrence: VE)
  Receive Date: 20140901
  Receipt Date: 20140901
  Transmission Date: 20150326
  Serious: Yes (Other)
  Sender: FDA-Public Use
  Company Number: PHHY2014VE109789

PATIENT
  Age: 54 Year
  Sex: Female

DRUGS (3)
  1. TEGRETOL [Suspect]
     Active Substance: CARBAMAZEPINE
     Dosage: 1200 MG, DAILY
     Route: 048
     Dates: start: 20140825
  2. TEGRETOL [Suspect]
     Active Substance: CARBAMAZEPINE
     Dosage: 800 MG, DAILY
     Route: 048
     Dates: start: 20140807, end: 20140825
  3. TEGRETOL [Suspect]
     Active Substance: CARBAMAZEPINE
     Indication: ARRHYTHMIA
     Dosage: 400 MG, BID
     Route: 048
     Dates: start: 20070811, end: 20140807

REACTIONS (1)
  - Convulsion [Recovering/Resolving]

NARRATIVE: CASE EVENT DATE: 20140807
